FAERS Safety Report 8125147-8 (Version None)
Quarter: 2012Q1

REPORT INFORMATION
  Report Type: 
  Country: None (occurrence: None)
  Receive Date: 20120209
  Receipt Date: 20120202
  Transmission Date: 20120608
  Serious: Yes (Hospitalization)
  Sender: FDA-Public Use
  Company Number: IT-TEVA-321608ISR

PATIENT
  Sex: Male

DRUGS (4)
  1. ALLOPURINOL [Concomitant]
  2. VIDAZA [Concomitant]
     Dosage: 135 MILLIGRAM;
     Route: 058
     Dates: start: 20090629, end: 20110712
  3. ONCO-CARBIDE [Concomitant]
     Dosage: 500 MILLIGRAM;
     Route: 048
     Dates: start: 20110817, end: 20111130
  4. ETOPOSIDE [Suspect]
     Indication: ACUTE MYELOID LEUKAEMIA
     Dosage: 200 MILLIGRAM;
     Route: 042
     Dates: start: 20111130, end: 20111130

REACTIONS (1)
  - TUMOUR LYSIS SYNDROME [None]
